FAERS Safety Report 20863067 (Version 1)
Quarter: 2022Q2

REPORT INFORMATION
  Report Type: Spontaneous
  Country: US (occurrence: US)
  Receive Date: 20220523
  Receipt Date: 20220523
  Transmission Date: 20220721
  Serious: No
  Sender: FDA-Public Use
  Company Number: US-PFIZER INC-202200697123

PATIENT
  Age: 77 Year

DRUGS (1)
  1. SPIRONOLACTONE [Suspect]
     Active Substance: SPIRONOLACTONE
     Dosage: UNK
     Dates: start: 1984

REACTIONS (6)
  - Rash [Unknown]
  - Acne [Unknown]
  - Cardiac disorder [Unknown]
  - Renal disorder [Unknown]
  - Blood pressure increased [Unknown]
  - Chest discomfort [Unknown]
